FAERS Safety Report 7823887-9 (Version None)
Quarter: 2011Q3

REPORT INFORMATION
  Report Type: 
  Country: None (occurrence: None)
  Receive Date: 20110901
  Receipt Date: 20101124
  Transmission Date: 20111222
  Serious: Yes (Other)
  Sender: FDA-Public Use
  Company Number: 257580USA

PATIENT
  Sex: Female

DRUGS (1)
  1. METOCLOPRAMIDE [Suspect]
     Dates: start: 20030601, end: 20041001

REACTIONS (3)
  - TARDIVE DYSKINESIA [None]
  - DYSKINESIA [None]
  - EXTRAPYRAMIDAL DISORDER [None]
